FAERS Safety Report 14405515 (Version 3)
Quarter: 2018Q1

REPORT INFORMATION
  Report Type: Spontaneous
  Country: US (occurrence: US)
  Receive Date: 20180118
  Receipt Date: 20180308
  Transmission Date: 20180509
  Serious: No
  Sender: FDA-Public Use
  Company Number: US-PFIZER INC-2018020901

PATIENT
  Age: 26 Year
  Sex: Female
  Weight: 49 kg

DRUGS (4)
  1. ELELYSO [Suspect]
     Active Substance: TALIGLUCERASE ALFA
     Dosage: 700 UNITS OR 15 U/KG EVERY 2 WEEKS
     Route: 042
  2. ELELYSO [Suspect]
     Active Substance: TALIGLUCERASE ALFA
     Indication: GAUCHER^S DISEASE TYPE I
     Dosage: 800 IU, EVERY 2 WEEKS
  3. ELELYSO [Suspect]
     Active Substance: TALIGLUCERASE ALFA
     Dosage: 700 IU, CYCLIC
     Route: 042
  4. ELELYSO [Suspect]
     Active Substance: TALIGLUCERASE ALFA
     Dosage: 700 UNITS OR 15 U/KG EVERY 2 WEEKS
     Route: 042

REACTIONS (7)
  - Influenza [Unknown]
  - Weight increased [Unknown]
  - Fatigue [Unknown]
  - Drug effect incomplete [Unknown]
  - Chest discomfort [Recovered/Resolved]
  - Feeling hot [Recovered/Resolved]
  - Feeling abnormal [Unknown]
